FAERS Safety Report 7810426-1 (Version None)
Quarter: 2011Q4

REPORT INFORMATION
  Report Type: 
  Country: None (occurrence: None)
  Receive Date: 20111012
  Receipt Date: 20111005
  Transmission Date: 20120403
  Serious: Yes (Disabling)
  Sender: FDA-Public Use
  Company Number: US-MERCK-1109USA01919

PATIENT
  Age: 54 Year
  Sex: Female

DRUGS (2)
  1. VITAMINS (UNSPECIFIED) [Concomitant]
     Route: 048
     Dates: start: 20000101
  2. FOSAMAX [Suspect]
     Indication: OSTEOPENIA
     Route: 048
     Dates: start: 20010101, end: 20090401

REACTIONS (8)
  - POST-TRAUMATIC STRESS DISORDER [None]
  - PANIC ATTACK [None]
  - VITAMIN D DEFICIENCY [None]
  - FEMUR FRACTURE [None]
  - BLOOD CHOLESTEROL INCREASED [None]
  - DIABETES MELLITUS [None]
  - PAIN IN EXTREMITY [None]
  - BONE DISORDER [None]
